FAERS Safety Report 14520651 (Version 2)
Quarter: 2018Q2

REPORT INFORMATION
  Report Type: Spontaneous
  Country: US (occurrence: US)
  Receive Date: 20180212
  Receipt Date: 20180511
  Transmission Date: 20180711
  Serious: No
  Sender: FDA-Public Use
  Company Number: US-AMGEN-USASP2017182592

PATIENT
  Age: 58 Year
  Sex: Female
  Weight: 52.8 kg

DRUGS (3)
  1. DOXERCALCIFEROL. [Concomitant]
     Active Substance: DOXERCALCIFEROL
     Dosage: 9 MUG, 3 TIMES/WK
     Dates: start: 20130101
  2. VITAMIN D [Concomitant]
     Active Substance: CHOLECALCIFEROL
     Dosage: 50000 UNK, QWK
     Dates: start: 20171016
  3. PARSABIV [Suspect]
     Active Substance: ETELCALCETIDE HYDROCHLORIDE
     Indication: HYPERPARATHYROIDISM SECONDARY
     Dosage: 5 MG, 3 TIMES/WK
     Route: 042
     Dates: start: 20171201

REACTIONS (1)
  - Nausea [Recovered/Resolved]

NARRATIVE: CASE EVENT DATE: 20171203
